FAERS Safety Report 23371268 (Version 1)
Quarter: 2024Q1

REPORT INFORMATION
  Report Type: Spontaneous
  Country: US (occurrence: US)
  Receive Date: 20240105
  Receipt Date: 20240105
  Transmission Date: 20240410
  Serious: No
  Sender: FDA-Public Use
  Company Number: US-UPSHER-SMITH LABORATORIES, LLC-2023USL00834

PATIENT
  Sex: Male

DRUGS (1)
  1. ISOTRETINOIN [Suspect]
     Active Substance: ISOTRETINOIN
     Dosage: UNK
     Dates: start: 20230801, end: 2023

REACTIONS (1)
  - Feeling abnormal [Unknown]

NARRATIVE: CASE EVENT DATE: 20230101
